FAERS Safety Report 21653547 (Version 1)
Quarter: 2022Q4

REPORT INFORMATION
  Report Type: Spontaneous
  Country: US (occurrence: US)
  Receive Date: 20221129
  Receipt Date: 20221129
  Transmission Date: 20230112
  Serious: Yes (Hospitalization)
  Sender: FDA-Public Use
  Company Number: US-drreddys-LIT/USA/22/0157508

PATIENT
  Age: 31 Year
  Sex: Female

DRUGS (14)
  1. DECITABINE [Suspect]
     Active Substance: DECITABINE
     Indication: Myelodysplastic syndrome
     Dosage: DAYS (1-10)
  2. TACROLIMUS [Suspect]
     Active Substance: TACROLIMUS
     Indication: Prophylaxis against graft versus host disease
     Dosage: 100 MG DAILY
  3. DAUNORUBICIN [Suspect]
     Active Substance: DAUNORUBICIN
     Indication: Myelodysplastic syndrome
     Dosage: VYXEOS, 100 UNITS/M2, DAYS 1, 3, 5
  4. CYTARABINE [Suspect]
     Active Substance: CYTARABINE
     Indication: Myelodysplastic syndrome
     Dosage: VYXEOS, 100 UNITS/M2, DAYS 1, 3, 5
  5. CYCLOPHOSPHAMIDE [Suspect]
     Active Substance: CYCLOPHOSPHAMIDE
     Indication: Prophylaxis against graft versus host disease
     Dosage: DAYS ? 6 AND ? 5
  6. CYCLOPHOSPHAMIDE [Suspect]
     Active Substance: CYCLOPHOSPHAMIDE
     Dosage: REDUCED TO 37.5 MG/KG, DAYS +3 AND +4)
  7. MYCOPHENOLATE MOFETIL [Suspect]
     Active Substance: MYCOPHENOLATE MOFETIL
     Indication: Prophylaxis against graft versus host disease
     Dosage: STARTING DAY +5
  8. MYCOPHENOLATE MOFETIL [Suspect]
     Active Substance: MYCOPHENOLATE MOFETIL
     Indication: Atypical haemolytic uraemic syndrome
  9. FLUDARABINE [Suspect]
     Active Substance: FLUDARABINE PHOSPHATE
     Indication: Prophylaxis against graft versus host disease
     Dosage: REDUCED TO 24 MG/M2/DAY, DAYS ? 4,?3, ? 2
  10. AZACITIDINE [Concomitant]
     Active Substance: AZACITIDINE
     Indication: Acute myeloid leukaemia
     Dosage: 75 MG/M2 , DAYS 1?5, MONTHLY
  11. AZACITIDINE [Concomitant]
     Active Substance: AZACITIDINE
     Indication: Atypical haemolytic uraemic syndrome
  12. VENETOCLAX [Concomitant]
     Active Substance: VENETOCLAX
     Indication: Acute myeloid leukaemia
  13. VENETOCLAX [Concomitant]
     Active Substance: VENETOCLAX
     Indication: Atypical haemolytic uraemic syndrome
  14. ECULIZUMAB [Concomitant]
     Active Substance: ECULIZUMAB
     Indication: Atypical haemolytic uraemic syndrome

REACTIONS (8)
  - Atypical haemolytic uraemic syndrome [Unknown]
  - Hypervolaemia [Unknown]
  - Thrombotic microangiopathy [Unknown]
  - Delayed engraftment [Unknown]
  - Thrombocytopenia [Unknown]
  - Respiratory failure [Unknown]
  - Febrile neutropenia [Unknown]
  - Drug ineffective [Unknown]
